FAERS Safety Report 22359559 (Version 1)
Quarter: 2023Q2

REPORT INFORMATION
  Report Type: Spontaneous
  Country: ES (occurrence: ES)
  Receive Date: 20230524
  Receipt Date: 20230524
  Transmission Date: 20230722
  Serious: Yes (Other)
  Sender: FDA-Public Use
  Company Number: None

PATIENT

DRUGS (2)
  1. DICLOFENAC DIETHYLAMINE [Suspect]
     Active Substance: DICLOFENAC DIETHYLAMINE
     Indication: Back pain
     Dosage: UNK
     Dates: start: 20220623, end: 20220623
  2. VALIUM [Suspect]
     Active Substance: DIAZEPAM
     Indication: Back pain
     Dosage: UNK
     Dates: start: 20220623, end: 20220624

REACTIONS (1)
  - Anaphylactic reaction [Recovered/Resolved]

NARRATIVE: CASE EVENT DATE: 20220624
